FAERS Safety Report 9424414 (Version 2)
Quarter: 2013Q3

REPORT INFORMATION
  Report Type: Spontaneous
  Country: US (occurrence: None)
  Receive Date: 20130725
  Receipt Date: 20130729
  Transmission Date: 20140515
  Serious: Yes (Hospitalization)
  Sender: FDA-Public Use
  Company Number: AUR-APL-2013-06145

PATIENT
  Age: 75 Year
  Sex: Female

DRUGS (9)
  1. SIMVASTATIN [Suspect]
     Indication: PRODUCT USED FOR UNKNOWN INDICATION
  2. NPH INSULIN (ISOPHANE INSULIN) [Concomitant]
  3. CLOPIDOGREL (CLOPIDOGREL) [Concomitant]
  4. HYDRALAZINE HCL W/ISOSORBIDE DINITRATE (BIDIL) [Concomitant]
  5. FUROSEMIDE (FUROSEMIDE) [Concomitant]
  6. POTASSIUM CHLORIDE (POTASSIUM CHLORIDE) [Concomitant]
  7. HYDROCHLOROTHIAZIDE (HYDROCHLOROTHIAZIDE) [Concomitant]
  8. AMLODIPINE (AMLODIPINE) [Concomitant]
  9. CARVEDILOL (CARVEDILOL) [Concomitant]

REACTIONS (1)
  - Angioedema [None]
